FAERS Safety Report 19915505 (Version 1)
Quarter: 2021Q4

REPORT INFORMATION
  Report Type: Spontaneous
  Country: US (occurrence: US)
  Receive Date: 20211004
  Receipt Date: 20211004
  Transmission Date: 20220303
  Serious: No
  Sender: FDA-Public Use
  Company Number: US-OTSUKA-2020_030056

PATIENT
  Sex: Male

DRUGS (1)
  1. ARIPIPRAZOLE [Suspect]
     Active Substance: ARIPIPRAZOLE
     Indication: Product used for unknown indication
     Dosage: UNK (1/2 OF 5 MG)
     Route: 065
     Dates: start: 202011, end: 20201125

REACTIONS (5)
  - Tachyphrenia [Not Recovered/Not Resolved]
  - Anger [Unknown]
  - Irritability [Unknown]
  - Agitation [Unknown]
  - Hypersexuality [Unknown]

NARRATIVE: CASE EVENT DATE: 20201101
